FAERS Safety Report 9910469 (Version 1)
Quarter: 2014Q1

REPORT INFORMATION
  Report Type: Spontaneous
  Country: GB (occurrence: GB)
  Receive Date: 20140219
  Receipt Date: 20140219
  Transmission Date: 20141002
  Serious: Yes (Other)
  Sender: FDA-Public Use
  Company Number: GB-TEVA-462915ISR

PATIENT
  Sex: Female

DRUGS (1)
  1. TRAMADOL [Suspect]
     Indication: SURGERY

REACTIONS (1)
  - Transient ischaemic attack [Recovered/Resolved]
